FAERS Safety Report 18015838 (Version 1)
Quarter: 2020Q3

REPORT INFORMATION
  Report Type: Spontaneous
  Country: CA (occurrence: CA)
  Receive Date: 20200713
  Receipt Date: 20200713
  Transmission Date: 20201103
  Serious: Yes (Life-Threatening, Disabling, Other)
  Sender: FDA-Public Use
  Company Number: CA-TEVA-2020-CA-1798784

PATIENT
  Age: 71 Year
  Sex: Female
  Weight: 49.94 kg

DRUGS (4)
  1. ATIVAN [Concomitant]
     Active Substance: LORAZEPAM
  2. TEVA?QUETIAPINE [Suspect]
     Active Substance: QUETIAPINE
     Indication: SLEEP DEFICIT
     Dosage: 1 DOSAGE FORMS DAILY;
     Route: 048
  3. HYDROCHLOROTHIAZIDE. [Concomitant]
     Active Substance: HYDROCHLOROTHIAZIDE
  4. TYLENOL WITH CODEINE [Concomitant]
     Active Substance: ACETAMINOPHEN\CODEINE PHOSPHATE

REACTIONS (9)
  - Delirium [Not Recovered/Not Resolved]
  - Nightmare [Not Recovered/Not Resolved]
  - No reaction on previous exposure to drug [Not Recovered/Not Resolved]
  - Myocardial infarction [Not Recovered/Not Resolved]
  - Tachycardia [Not Recovered/Not Resolved]
  - Depressed mood [Not Recovered/Not Resolved]
  - Glucose tolerance impaired [Not Recovered/Not Resolved]
  - Neuroleptic malignant syndrome [Not Recovered/Not Resolved]
  - Suicidal ideation [Not Recovered/Not Resolved]
